FAERS Safety Report 25437083 (Version 1)
Quarter: 2025Q2

REPORT INFORMATION
  Report Type: Spontaneous
  Country: US (occurrence: US)
  Receive Date: 20250615
  Receipt Date: 20250615
  Transmission Date: 20250717
  Serious: No
  Sender: ABBVIE
  Company Number: US-ABBVIE-6326703

PATIENT

DRUGS (1)
  1. HUMIRA [Suspect]
     Active Substance: ADALIMUMAB
     Indication: Psoriasis
     Route: 058
     Dates: start: 202407

REACTIONS (9)
  - Fatigue [Unknown]
  - Arthralgia [Unknown]
  - Muscular weakness [Unknown]
  - Skin atrophy [Unknown]
  - Acquired Von Willebrand^s disease [Unknown]
  - Hepatic enzyme increased [Unknown]
  - Enzyme level increased [Unknown]
  - Urinary tract infection [Unknown]
  - Rash macular [Unknown]

NARRATIVE: CASE EVENT DATE: 20250101
